FAERS Safety Report 8185028-0 (Version None)
Quarter: 2012Q1

REPORT INFORMATION
  Report Type: 
  Country: None (occurrence: None)
  Receive Date: 20120301
  Receipt Date: 20120215
  Transmission Date: 20120608
  Serious: Yes (Other)
  Sender: FDA-Public Use
  Company Number: 2012HGS-003102

PATIENT
  Age: 58 Year
  Sex: Female
  Weight: 122.4712 kg

DRUGS (38)
  1. ZOLOFT [Concomitant]
  2. BYETTA SQ (EXENATIDE) (EXENATIDE) [Concomitant]
  3. NITROGLYCERIN PATCH (GLYCERYL TRINITRATE) (GLYCERYL TRINITRATE) [Concomitant]
  4. NORVASC [Concomitant]
  5. DILAUDID (HYDROMORPHONE HYDROCHLORIDE) (HYDROMORPHONE HYDROCHLORIDE) [Concomitant]
  6. LIDODERM PATCH (LIDOCAINE) (LIDOCAINE) [Concomitant]
  7. SINGULAIR (MONTELUKAST SODIUM) (MONTELUKAST SODIUM) [Concomitant]
  8. FLOVENT (FLUTICASONE PROPIONATE) (FLUTICASONE PROPIONATE) [Concomitant]
  9. SLOW MAG (MAGNESIUM CHLORIDE ANHYDROUS) (MAGNESIUM CHLORIDE ANHYDROUS) [Concomitant]
  10. CELLCEPT (MYCOPHENOLATE MOFETIL) (MYCOPHENOLATE MOFETIL) [Concomitant]
  11. PROTONIX (PANTOPRAZOLE SODIUM SESQUIYDRATE) (PANTOPRAZOLE SODIUM SESQU [Concomitant]
  12. METOPROLOL SUCCINATE [Concomitant]
  13. FOLIC ACID [Concomitant]
  14. ZOCOR [Concomitant]
  15. LASIX [Concomitant]
  16. VALTREX (VALACICLOVIR HYDROCHLORIDE) (VALACICLOVIR HYDROCHLORIDE) [Concomitant]
  17. XANAX [Concomitant]
  18. JANUVIA (SITAGLIPTIN PHOSPHATE) (SITAGLIPTIN PHOSPHATE) [Concomitant]
  19. LISINOPRIL [Concomitant]
  20. VITAMIN D (ERGOCALCIFEROL) (ERGOCALCIFEROL) [Concomitant]
  21. NORCO (VICODIN) (PARACETAMOL, HYDROCORTONE BITARTRATE) [Concomitant]
  22. BUTRANS PATCH (BUPRENORPHINE) (BUPRENORPHINE) [Concomitant]
  23. BENLYSTA [Suspect]
     Indication: SYSTEMIC LUPUS ERYTHEMATOSUS
     Dosage: 10 MG/KG, 1 IN 28 D, INTRAVENOUS DRIP
     Route: 041
     Dates: start: 20110705
  24. PREDNISONE [Concomitant]
  25. CELEBREX [Concomitant]
  26. BACTRIM DS (BACTRIM) (SULFAMETHOXAZOLE, TRIMETHOPRIM) [Concomitant]
  27. VITAMIN B12 (CYANOCOBALAMIN) (CYANOCOBALAMIN) [Concomitant]
  28. SPIRIVA (TIOTROPIUM BROMIDE) (TIOTROPIUM BROMIDE) [Concomitant]
  29. TRAZODONE (TRAZODONE) (TRAZODONE) [Concomitant]
  30. CALCIUM (CALCIUM) (CALCIUM) [Concomitant]
  31. COUMADIN [Concomitant]
  32. SYNTHROID (LEVOTHYROXINE SODIUM) (LEVOTHYROXINE SODIUM) [Concomitant]
  33. LUMIGAN (BIMATOPROST) (BIMATOPROST) [Concomitant]
  34. SPIRONOLACTONE [Concomitant]
  35. VENTOLIN INH (SALBUTAMOL) (SALBUTAMOL) [Concomitant]
  36. ALBUTEROL NEB (SALBUTAMOL) (SALBUTAMOL) [Concomitant]
  37. FORTEO (TERIPARATIDE) (TERIPARATIDE) [Concomitant]
  38. GABAPENTIN [Concomitant]

REACTIONS (3)
  - KLEBSIELLA INFECTION [None]
  - PNEUMONIA BACTERIAL [None]
  - STENOTROPHOMONAS INFECTION [None]
